FAERS Safety Report 10070676 (Version 1)
Quarter: 2014Q2

REPORT INFORMATION
  Report Type: Spontaneous
  Country: US (occurrence: None)
  Receive Date: 20140409
  Receipt Date: 20140409
  Transmission Date: 20141212
  Serious: Yes (Other)
  Sender: FDA-Public Use
  Company Number: 201403135

PATIENT
  Sex: Male

DRUGS (1)
  1. TESTIM [Suspect]
     Indication: ANDROGEN REPLACEMENT THERAPY
     Route: 062
     Dates: start: 201302, end: 2013

REACTIONS (1)
  - Joint injury [None]
